FAERS Safety Report 22131688 (Version 1)
Quarter: 2023Q1

REPORT INFORMATION
  Report Type: Spontaneous
  Country: FR (occurrence: FR)
  Receive Date: 20230323
  Receipt Date: 20230323
  Transmission Date: 20230417
  Serious: Yes (Death, Hospitalization, Other)
  Sender: FDA-Public Use
  Company Number: None

PATIENT
  Age: 20 Year
  Sex: Female
  Weight: 60 kg

DRUGS (2)
  1. LANTUS [Suspect]
     Active Substance: INSULIN GLARGINE
     Indication: Intentional overdose
     Dosage: 9 DF, 1X
     Route: 058
     Dates: start: 20221118, end: 20221118
  2. ZOPICLONE [Suspect]
     Active Substance: ZOPICLONE
     Indication: Intentional overdose
     Dosage: 24 DF, 1X
     Route: 048
     Dates: start: 20221118, end: 20221118

REACTIONS (5)
  - Coma [Fatal]
  - Seizure [Fatal]
  - Poisoning deliberate [Fatal]
  - Respiratory depression [Fatal]
  - Hypoglycaemia [Recovered/Resolved]

NARRATIVE: CASE EVENT DATE: 20221118
